FAERS Safety Report 5249189-5 (Version None)
Quarter: 2007Q1

REPORT INFORMATION
  Report Type: 
  Country: None (occurrence: None)
  Receive Date: 20070228
  Receipt Date: 20070219
  Transmission Date: 20070707
  Serious: Yes (Death)
  Sender: FDA-Public Use
  Company Number: JP-JNJFOC-20060902587

PATIENT
  Sex: Female

DRUGS (15)
  1. LEUSTATIN [Suspect]
     Indication: LYMPHOPLASMACYTOID LYMPHOMA/IMMUNOCYTOMA
     Route: 042
  2. DECADRON [Concomitant]
     Indication: LYMPHOPLASMACYTOID LYMPHOMA/IMMUNOCYTOMA
  3. MEROPEN [Concomitant]
     Indication: PYREXIA
     Route: 042
  4. FIRSTCIN [Concomitant]
     Indication: PYREXIA
     Route: 042
  5. BONALON [Concomitant]
     Indication: OSTEOPOROSIS
     Route: 048
  6. ASCORBIC ACID [Concomitant]
     Indication: HYPOVITAMINOSIS
     Route: 048
  7. GASTER D [Concomitant]
     Route: 048
  8. MAGNESIUM OXIDE [Concomitant]
     Indication: CONSTIPATION
     Route: 048
  9. LASIX [Concomitant]
     Indication: OEDEMA PERIPHERAL
  10. BAKTAR [Concomitant]
     Indication: INFECTION PROPHYLAXIS
     Route: 048
  11. ISCOTIN [Concomitant]
     Indication: INFECTION PROPHYLAXIS
     Route: 048
  12. NEU-UP [Concomitant]
  13. NEUTROGIN [Concomitant]
  14. PLATELETS [Concomitant]
  15. HUMAN RED BLOOD CELLS [Concomitant]

REACTIONS (6)
  - ANAEMIA [None]
  - LYMPHOPLASMACYTOID LYMPHOMA/IMMUNOCYTOMA [None]
  - MALIGNANT NEOPLASM PROGRESSION [None]
  - PLATELET COUNT DECREASED [None]
  - STEVENS-JOHNSON SYNDROME [None]
  - WHITE BLOOD CELL COUNT DECREASED [None]
